FAERS Safety Report 7922622-3 (Version None)
Quarter: 2011Q4

REPORT INFORMATION
  Report Type: 
  Country: None (occurrence: None)
  Receive Date: 20111117
  Receipt Date: 20110121
  Transmission Date: 20120403
  Serious: No
  Sender: FDA-Public Use
  Company Number: US-AMGEN-USASP2011003860

PATIENT
  Age: 66 Year
  Sex: Male

DRUGS (1)
  1. ENBREL [Suspect]
     Indication: PSORIASIS
     Dosage: 50 MG, QWK

REACTIONS (4)
  - WHITE BLOOD CELL COUNT ABNORMAL [None]
  - HAEMOGLOBIN ABNORMAL [None]
  - PLATELET COUNT ABNORMAL [None]
  - LABORATORY TEST ABNORMAL [None]
